FAERS Safety Report 16276617 (Version 1)
Quarter: 2019Q2

REPORT INFORMATION
  Report Type: Spontaneous
  Country: US (occurrence: US)
  Receive Date: 20190506
  Receipt Date: 20190506
  Transmission Date: 20190711
  Serious: No
  Sender: FDA-Public Use
  Company Number: US-PFIZER INC-2019185652

PATIENT
  Sex: Male
  Weight: 102 kg

DRUGS (1)
  1. ZIPRASIDONE HCL [Suspect]
     Active Substance: ZIPRASIDONE HYDROCHLORIDE
     Indication: MENTAL DISORDER
     Dosage: 80 MG, 1X/DAY (BEFORE BEDTIME)
     Route: 048

REACTIONS (8)
  - Posture abnormal [Unknown]
  - Strabismus [Unknown]
  - Movement disorder [Unknown]
  - Extraocular muscle disorder [Unknown]
  - Pollakiuria [Unknown]
  - Muscle twitching [Unknown]
  - Visual impairment [Unknown]
  - Dry mouth [Unknown]
